FAERS Safety Report 24890576 (Version 1)
Quarter: 2025Q1

REPORT INFORMATION
  Report Type: Spontaneous
  Country: DE (occurrence: DE)
  Receive Date: 20250127
  Receipt Date: 20250127
  Transmission Date: 20250409
  Serious: Yes (Hospitalization, Other)
  Sender: TEVA
  Company Number: None

PATIENT
  Age: 35 Year
  Sex: Female
  Weight: 115 kg

DRUGS (1)
  1. AZITHROMYCIN [Suspect]
     Active Substance: AZITHROMYCIN
     Indication: Pertussis
     Route: 048
     Dates: start: 20240803, end: 20240805

REACTIONS (5)
  - Cardiovascular disorder [Unknown]
  - Ocular icterus [Unknown]
  - Urinary hesitation [Recovered/Resolved]
  - Haemolytic anaemia [Recovered/Resolved]
  - Jaundice [Recovered/Resolved]

NARRATIVE: CASE EVENT DATE: 20240801
